FAERS Safety Report 20881224 (Version 2)
Quarter: 2022Q2

REPORT INFORMATION
  Report Type: Spontaneous
  Country: BE (occurrence: BE)
  Receive Date: 20220526
  Receipt Date: 20220531
  Transmission Date: 20220721
  Serious: Yes (Other)
  Sender: FDA-Public Use
  Company Number: BE-JNJFOC-20220534752

PATIENT
  Sex: Male

DRUGS (10)
  1. ERLEADA [Suspect]
     Active Substance: APALUTAMIDE
     Indication: Prostate cancer
     Dosage: WITH OR WITHOUT MEALS, AT A FIXED TIME
     Route: 048
     Dates: start: 20220321
  2. ERLEADA [Suspect]
     Active Substance: APALUTAMIDE
     Route: 048
  3. MEDROL [Interacting]
     Active Substance: METHYLPREDNISOLONE
     Indication: Product used for unknown indication
     Dosage: AT 10 AM AFTER MEAL
  4. GONADORELIN [Concomitant]
     Active Substance: GONADORELIN
  5. DABIGATRAN [Concomitant]
     Active Substance: DABIGATRAN
     Dosage: MORNING AND EVENING
  6. PANTOMED [DEXPANTHENOL] [Concomitant]
     Dosage: MORNING ON AN EMPTY STOMACH
  7. BISOPROLOL [Concomitant]
     Active Substance: BISOPROLOL
     Dosage: 1/2 TABLET
  8. METFORMIN [Concomitant]
     Active Substance: METFORMIN HYDROCHLORIDE
     Dosage: MORNING
  9. INDAPAMIDE\PERINDOPRIL ARGININE [Concomitant]
     Active Substance: INDAPAMIDE\PERINDOPRIL ARGININE
     Dosage: MORNING
  10. XGEVA [Concomitant]
     Active Substance: DENOSUMAB

REACTIONS (2)
  - Polyarthritis [Not Recovered/Not Resolved]
  - Drug interaction [Unknown]
